FAERS Safety Report 9218963 (Version 1)
Quarter: 2013Q2

REPORT INFORMATION
  Report Type: Spontaneous
  Country: US (occurrence: None)
  Receive Date: 20130405
  Receipt Date: 20130405
  Transmission Date: 20140414
  Serious: Yes (Other)
  Sender: FDA-Public Use
  Company Number: None

PATIENT
  Age: 16 Year
  Sex: Male
  Weight: 80.29 kg

DRUGS (2)
  1. ESCITALOPRAM [Suspect]
     Route: 048
     Dates: start: 201302
  2. ESCITALOPRAM [Suspect]
     Route: 048
     Dates: start: 201302

REACTIONS (2)
  - Headache [None]
  - Product substitution issue [None]
